FAERS Safety Report 4472056-1 (Version None)
Quarter: 2004Q4

REPORT INFORMATION
  Report Type: 
  Country: None (occurrence: None)
  Receive Date: 20041012
  Receipt Date: 20041006
  Transmission Date: 20050328
  Serious: Yes (Other)
  Sender: FDA-Public Use
  Company Number: 002885

PATIENT
  Age: 54 Year
  Sex: Female

DRUGS (4)
  1. MEDROXYPROGESTERONE ACETATE [Suspect]
     Dates: start: 19920101, end: 19980801
  2. PROVERA [Suspect]
     Dates: start: 19920101, end: 19980801
  3. PREMARIN [Suspect]
     Dates: start: 19920101, end: 19980801
  4. MEDROXYPROGESTERONE ACETATE [Suspect]
     Dates: start: 19980101, end: 19990701

REACTIONS (1)
  - BREAST CANCER FEMALE [None]
